FAERS Safety Report 8532932-7 (Version None)
Quarter: 2012Q3

REPORT INFORMATION
  Report Type: 
  Country: None (occurrence: None)
  Receive Date: 20120711
  Receipt Date: 20120626
  Transmission Date: 20120928
  Serious: Yes (Other)
  Sender: FDA-Public Use
  Company Number: FK201201826

PATIENT
  Sex: Female

DRUGS (3)
  1. IFOSFAMIDE [Suspect]
     Indication: NEURILEMMOMA MALIGNANT
  2. GEMCITABINE [Suspect]
     Indication: NEURILEMMOMA MALIGNANT
     Dosage: ON DAYS 1 AND 8
  3. DOCETAXEL [Suspect]
     Indication: NEURILEMMOMA MALIGNANT
     Dosage: ON DAY 8

REACTIONS (10)
  - THROMBOCYTOPENIA [None]
  - NEOPLASM PROGRESSION [None]
  - ANAEMIA [None]
  - PYREXIA [None]
  - ENCEPHALOPATHY [None]
  - LIVER INJURY [None]
  - PURPURA [None]
  - NEUTROPENIA [None]
  - LEUKOPENIA [None]
  - NEURILEMMOMA MALIGNANT [None]
